FAERS Safety Report 12067582 (Version 1)
Quarter: 2016Q1

REPORT INFORMATION
  Report Type: Spontaneous
  Country: US (occurrence: US)
  Receive Date: 20160210
  Receipt Date: 20160210
  Transmission Date: 20160526
  Serious: No
  Sender: FDA-Public Use
  Company Number: US-ALLERGAN-1527194US

PATIENT
  Age: 47 Year
  Sex: Female

DRUGS (1)
  1. BOTOX [Suspect]
     Active Substance: ONABOTULINUMTOXINA
     Indication: MIGRAINE
     Dosage: 200 UNITS, SINGLE
     Route: 030
     Dates: start: 20151021, end: 20151021

REACTIONS (8)
  - Eyelid oedema [Recovered/Resolved]
  - Off label use [Unknown]
  - Vision blurred [Recovered/Resolved]
  - Swelling face [Recovered/Resolved]
  - Dark circles under eyes [Recovered/Resolved]
  - Eye pain [Recovered/Resolved]
  - Hypersensitivity [Recovered/Resolved]
  - Lacrimation increased [Recovered/Resolved]

NARRATIVE: CASE EVENT DATE: 201510
